FAERS Safety Report 25146484 (Version 1)
Quarter: 2025Q2

REPORT INFORMATION
  Report Type: Spontaneous
  Country: DE (occurrence: DE)
  Receive Date: 20250401
  Receipt Date: 20250401
  Transmission Date: 20250717
  Serious: Yes (Other)
  Sender: MYLAN
  Company Number: DE-EMB-M202308967-1

PATIENT
  Sex: Female
  Weight: 80 kg

DRUGS (20)
  1. VENLAFAXINE [Suspect]
     Active Substance: VENLAFAXINE HYDROCHLORIDE
     Indication: Bipolar disorder
     Dosage: 37.5 MILLIGRAM, QD (POSSIBLY LONGER)
     Dates: start: 202305, end: 202401
  2. VENLAFAXINE [Suspect]
     Active Substance: VENLAFAXINE HYDROCHLORIDE
     Dosage: 37.5 MILLIGRAM, QD (POSSIBLY LONGER)
     Route: 048
     Dates: start: 202305, end: 202401
  3. VENLAFAXINE [Suspect]
     Active Substance: VENLAFAXINE HYDROCHLORIDE
     Dosage: 37.5 MILLIGRAM, QD (POSSIBLY LONGER)
     Route: 048
     Dates: start: 202305, end: 202401
  4. VENLAFAXINE [Suspect]
     Active Substance: VENLAFAXINE HYDROCHLORIDE
     Dosage: 37.5 MILLIGRAM, QD (POSSIBLY LONGER)
     Dates: start: 202305, end: 202401
  5. QUETIAPINE [Suspect]
     Active Substance: QUETIAPINE
     Indication: Bipolar disorder
     Dosage: 125 MILLIGRAM, QD (100-125 MG/D,  (25-0-0-100 MG/D), POSSIBLY LONGER)
     Dates: start: 202305, end: 202402
  6. QUETIAPINE [Suspect]
     Active Substance: QUETIAPINE
     Dosage: 125 MILLIGRAM, QD (100-125 MG/D,  (25-0-0-100 MG/D), POSSIBLY LONGER)
     Route: 048
     Dates: start: 202305, end: 202402
  7. QUETIAPINE [Suspect]
     Active Substance: QUETIAPINE
     Dosage: 125 MILLIGRAM, QD (100-125 MG/D,  (25-0-0-100 MG/D), POSSIBLY LONGER)
     Route: 048
     Dates: start: 202305, end: 202402
  8. QUETIAPINE [Suspect]
     Active Substance: QUETIAPINE
     Dosage: 125 MILLIGRAM, QD (100-125 MG/D,  (25-0-0-100 MG/D), POSSIBLY LONGER)
     Dates: start: 202305, end: 202402
  9. MIRTAZAPINE [Suspect]
     Active Substance: MIRTAZAPINE
     Indication: Bipolar disorder
     Dosage: 22.5 MILLIGRAM, QD (POSSIBLY LONGER, 15-22.5 MG/D)
     Dates: start: 202305, end: 202402
  10. MIRTAZAPINE [Suspect]
     Active Substance: MIRTAZAPINE
     Dosage: 22.5 MILLIGRAM, QD (POSSIBLY LONGER, 15-22.5 MG/D)
     Route: 048
     Dates: start: 202305, end: 202402
  11. MIRTAZAPINE [Suspect]
     Active Substance: MIRTAZAPINE
     Dosage: 22.5 MILLIGRAM, QD (POSSIBLY LONGER, 15-22.5 MG/D)
     Route: 048
     Dates: start: 202305, end: 202402
  12. MIRTAZAPINE [Suspect]
     Active Substance: MIRTAZAPINE
     Dosage: 22.5 MILLIGRAM, QD (POSSIBLY LONGER, 15-22.5 MG/D)
     Dates: start: 202305, end: 202402
  13. PERTUSSIS VACCINE [Concomitant]
     Active Substance: PERTUSSIS VACCINE
     Indication: Immunisation
  14. PERTUSSIS VACCINE [Concomitant]
     Active Substance: PERTUSSIS VACCINE
     Route: 030
  15. PERTUSSIS VACCINE [Concomitant]
     Active Substance: PERTUSSIS VACCINE
     Route: 030
  16. PERTUSSIS VACCINE [Concomitant]
     Active Substance: PERTUSSIS VACCINE
  17. RHOPHYLAC [Concomitant]
     Active Substance: HUMAN RHO(D) IMMUNE GLOBULIN
     Indication: Wrong product administered
     Dosage: 300 MICROGRAM, QD
     Dates: start: 202312, end: 202312
  18. RHOPHYLAC [Concomitant]
     Active Substance: HUMAN RHO(D) IMMUNE GLOBULIN
     Dosage: 300 MICROGRAM, QD
     Route: 030
     Dates: start: 202312, end: 202312
  19. RHOPHYLAC [Concomitant]
     Active Substance: HUMAN RHO(D) IMMUNE GLOBULIN
     Dosage: 300 MICROGRAM, QD
     Route: 030
     Dates: start: 202312, end: 202312
  20. RHOPHYLAC [Concomitant]
     Active Substance: HUMAN RHO(D) IMMUNE GLOBULIN
     Dosage: 300 MICROGRAM, QD
     Dates: start: 202312, end: 202312

REACTIONS (2)
  - Gestational diabetes [Recovered/Resolved]
  - Exposure during pregnancy [Unknown]
